FAERS Safety Report 7655876-1 (Version None)
Quarter: 2011Q3

REPORT INFORMATION
  Report Type: 
  Country: None (occurrence: None)
  Receive Date: 20110804
  Receipt Date: 20110726
  Transmission Date: 20111222
  Serious: Yes (Hospitalization)
  Sender: FDA-Public Use
  Company Number: JP-ASTRAZENECA-2011SE25006

PATIENT
  Age: 30598 Day
  Sex: Female

DRUGS (16)
  1. HALCION [Concomitant]
     Indication: SLEEP DISORDER
     Route: 048
  2. PLAVIX [Concomitant]
     Indication: ACUTE CORONARY SYNDROME
     Route: 048
     Dates: start: 20110405
  3. WARFARIN SODIUM [Concomitant]
     Route: 048
     Dates: start: 20110426, end: 20110429
  4. CLOPIDOGREL [Suspect]
     Indication: ACUTE CORONARY SYNDROME
     Route: 048
     Dates: start: 20110315
  5. ASPIRIN [Suspect]
     Indication: ACUTE CORONARY SYNDROME
     Route: 048
  6. FROSEMID [Concomitant]
     Indication: CARDIAC FAILURE
     Route: 048
     Dates: start: 20110317, end: 20110429
  7. MAGNESIUM SULFATE [Concomitant]
     Indication: CONSTIPATION
     Route: 048
     Dates: start: 20110317
  8. ALENDRONATE SODIUM [Concomitant]
     Indication: OSTEOPOROSIS
     Dosage: AS REQUIRED
     Route: 048
  9. NORVASC [Concomitant]
     Indication: HYPERTENSION
     Route: 048
  10. PURSENNID [Concomitant]
     Indication: CONSTIPATION
     Route: 048
     Dates: start: 20110317
  11. FAMOTIDINE [Concomitant]
     Indication: GASTRITIS PROPHYLAXIS
     Route: 048
  12. SUNRYTHM [Concomitant]
     Route: 048
     Dates: start: 20110427, end: 20110429
  13. PLACEBO [Suspect]
     Indication: ACUTE CORONARY SYNDROME
     Dosage: DAILY
     Route: 048
     Dates: start: 20110315
  14. MEDIPEACE [Concomitant]
     Indication: SLEEP DISORDER
     Route: 048
     Dates: start: 20110316
  15. CRESTOR [Concomitant]
     Indication: HYPERLIPIDAEMIA
     Route: 048
  16. ACTOS [Concomitant]
     Indication: DIABETES MELLITUS
     Route: 048

REACTIONS (1)
  - CARDIAC FAILURE CONGESTIVE [None]
